FAERS Safety Report 24365275 (Version 2)
Quarter: 2024Q4

REPORT INFORMATION
  Report Type: Report from Study
  Country: US (occurrence: US)
  Receive Date: 20240926
  Receipt Date: 20241021
  Transmission Date: 20250115
  Serious: Yes (Hospitalization, Other)
  Sender: ACADIA PHARMACEUTICALS
  Company Number: US-ACADIA PHARMACEUTICALS INC.-ACA-2024-TRF-005623

PATIENT
  Age: 9 Year
  Sex: Female

DRUGS (4)
  1. DAYBUE [Suspect]
     Active Substance: TROFINETIDE
     Indication: Rett syndrome
     Dosage: 30 MILLILITER, BID
     Route: 048
     Dates: start: 20230812, end: 20240830
  2. DAYBUE [Suspect]
     Active Substance: TROFINETIDE
     Dosage: 30 MILLILITER, BID
     Route: 048
  3. LACOSAMIDE [Concomitant]
     Active Substance: LACOSAMIDE
     Dosage: 50 MILLIGRAM
  4. LAMICTAL [Concomitant]
     Active Substance: LAMOTRIGINE
     Dosage: 100 MILLIGRAM

REACTIONS (3)
  - Postictal paralysis [Recovered/Resolved]
  - Seizure [Recovered/Resolved]
  - Product dose omission issue [Not Recovered/Not Resolved]

NARRATIVE: CASE EVENT DATE: 20240829
